FAERS Safety Report 7488190-8 (Version None)
Quarter: 2011Q2

REPORT INFORMATION
  Report Type: 
  Country: None (occurrence: None)
  Receive Date: 20110518
  Receipt Date: 20110509
  Transmission Date: 20111010
  Serious: Yes (Hospitalization, Other)
  Sender: FDA-Public Use
  Company Number: PHHY2010CA16436

PATIENT
  Sex: Female

DRUGS (5)
  1. ROSUVASTATIN [Concomitant]
     Dosage: 05 MG, QHS
  2. BUPROPION HYDROBROMIDE [Concomitant]
     Dosage: 150 MG, QD
  3. CLOZARIL [Suspect]
     Indication: PSYCHOTIC DISORDER
     Dosage: 250 MG, QD
     Dates: start: 20001221, end: 20100301
  4. CLOZARIL [Suspect]
     Dosage: 250 MG, QD
     Dates: start: 20100727
  5. GLICLAZIDE [Concomitant]
     Dosage: 50 MG, UNK

REACTIONS (3)
  - HYPOTENSION [None]
  - CEREBROVASCULAR ACCIDENT [None]
  - HEMIPARESIS [None]
